FAERS Safety Report 6010911-1 (Version None)
Quarter: 2008Q4

REPORT INFORMATION
  Report Type: 
  Country: None (occurrence: None)
  Receive Date: 20081218
  Receipt Date: 20081211
  Transmission Date: 20090506
  Serious: Yes (Hospitalization, Disabling)
  Sender: FDA-Public Use
  Company Number: US-ABBOTT-07P-163-0360659-00

PATIENT
  Age: 50 Year
  Sex: Male

DRUGS (10)
  1. RITONAVIR [Suspect]
     Indication: HIV INFECTION
     Route: 048
     Dates: start: 20051001, end: 20060501
  2. RITONAVIR [Suspect]
     Indication: ACQUIRED IMMUNODEFICIENCY SYNDROME
     Route: 048
     Dates: start: 20060510, end: 20070219
  3. APTIVUS [Suspect]
     Indication: HIV INFECTION
     Route: 048
     Dates: start: 20051001, end: 20060501
  4. APTIVUS [Suspect]
     Indication: ACQUIRED IMMUNODEFICIENCY SYNDROME
  5. PREZISTA [Suspect]
     Indication: DRUG USE FOR UNKNOWN INDICATION
     Route: 048
     Dates: start: 20060510, end: 20070219
  6. TMC [Concomitant]
     Indication: DRUG USE FOR UNKNOWN INDICATION
     Route: 048
     Dates: start: 20061128, end: 20070219
  7. TRUVADA [Concomitant]
     Indication: DRUG USE FOR UNKNOWN INDICATION
     Route: 048
     Dates: start: 20041123, end: 20050808
  8. TRUVADA [Concomitant]
     Dates: start: 20060510, end: 20070219
  9. BACTRIM [Concomitant]
     Indication: DRUG USE FOR UNKNOWN INDICATION
     Route: 048
     Dates: start: 20041101, end: 20050801
  10. FUZEON [Concomitant]
     Indication: DRUG USE FOR UNKNOWN INDICATION
     Route: 058
     Dates: start: 20051001, end: 20060327

REACTIONS (3)
  - CEREBRAL INFARCTION [None]
  - DISORIENTATION [None]
  - HAEMORRHAGE INTRACRANIAL [None]
